FAERS Safety Report 7403329-8 (Version None)
Quarter: 2011Q1

REPORT INFORMATION
  Report Type: 
  Country: None (occurrence: None)
  Receive Date: 20110331
  Receipt Date: 20110315
  Transmission Date: 20110831
  Serious: Yes (Hospitalization)
  Sender: FDA-Public Use
  Company Number: DAV-AE-AMO-11-008

PATIENT
  Age: 11 Year
  Sex: Female

DRUGS (1)
  1. AMOXICILLIN [Suspect]
     Indication: TONSILLITIS
     Dosage: 0.9 G/10DAYS

REACTIONS (7)
  - KLEBSIELLA INFECTION [None]
  - GASTROINTESTINAL DISORDER [None]
  - ABDOMINAL PAIN [None]
  - WHITE BLOOD CELL COUNT INCREASED [None]
  - NO THERAPEUTIC RESPONSE [None]
  - CULTURE STOOL POSITIVE [None]
  - DIARRHOEA HAEMORRHAGIC [None]
